FAERS Safety Report 25104646 (Version 1)
Quarter: 2025Q1

REPORT INFORMATION
  Report Type: Spontaneous
  Country: CA (occurrence: CA)
  Receive Date: 20250321
  Receipt Date: 20250321
  Transmission Date: 20250409
  Serious: Yes (Life-Threatening, Hospitalization, Other)
  Sender: SERVIER
  Company Number: None

PATIENT

DRUGS (1)
  1. ONCASPAR [Suspect]
     Active Substance: PEGASPARGASE
     Indication: Product used for unknown indication
     Route: 065

REACTIONS (10)
  - Abdominal pain [Unknown]
  - Tremor [Unknown]
  - Somnolence [Unknown]
  - Poor venous access [Unknown]
  - Photophobia [Unknown]
  - Phonophobia [Unknown]
  - Pain in extremity [Unknown]
  - Cerebral thrombosis [Unknown]
  - Headache [Unknown]
  - Decreased appetite [Unknown]
